FAERS Safety Report 10723419 (Version 1)
Quarter: 2015Q1

REPORT INFORMATION
  Report Type: Report from Study
  Country: FR (occurrence: FR)
  Receive Date: 20150120
  Receipt Date: 20150120
  Transmission Date: 20150721
  Serious: Yes (Death, Hospitalization)
  Sender: FDA-Public Use
  Company Number: FR-TEVA-534187ISR

PATIENT
  Age: 76 Year
  Sex: Male
  Weight: 79.4 kg

DRUGS (17)
  1. INNOHEP [Concomitant]
     Active Substance: TINZAPARIN SODIUM
     Indication: DRUG THERAPY
     Dosage: .75 ML DAILY;
     Route: 058
     Dates: start: 20140729, end: 20141001
  2. CIFLOX [Concomitant]
     Active Substance: CIPROFLOXACIN
     Indication: INFECTION
     Dosage: 1000 MILLIGRAM DAILY;
     Route: 048
     Dates: start: 20140825, end: 20140901
  3. LARGACTIL [Concomitant]
     Active Substance: CHLORPROMAZINE
     Indication: PSYCHOTIC DISORDER
     Dosage: 0.5 OR 1 VIAL PER 24 HOURS
     Route: 042
     Dates: start: 20140918
  4. VANCOMYCINE [Concomitant]
     Active Substance: VANCOMYCIN
     Indication: PSEUDOMONAS INFECTION
     Dosage: 500 MILLIGRAM DAILY;
     Route: 048
     Dates: start: 20140923, end: 20140923
  5. SERESTA [Concomitant]
     Active Substance: OXAZEPAM
     Indication: DEPRESSION
  6. ROCEPHINE [Concomitant]
     Active Substance: CEFTRIAXONE SODIUM
     Indication: INFECTION
     Dosage: 1 GRAM DAILY;
     Dates: start: 20140903, end: 20140916
  7. HYPNOVEL [Concomitant]
     Active Substance: MIDAZOLAM\MIDAZOLAM HYDROCHLORIDE
     Indication: SEDATIVE THERAPY
     Dosage: 2.4 MILLIGRAM DAILY;
     Route: 042
     Dates: start: 20140930
  8. VANCOMYCINE [Concomitant]
     Active Substance: VANCOMYCIN
     Dosage: 2 GRAM DAILY;
     Route: 048
     Dates: start: 20140924
  9. TIENAM [Concomitant]
     Active Substance: CILASTATIN SODIUM\IMIPENEM
     Dosage: 2000 MILLIGRAM DAILY; STOPPED DUE TO CONFUSION AND HALLUCINATION
     Route: 048
     Dates: start: 20140926, end: 20140927
  10. OROKEN [Concomitant]
     Active Substance: CEFIXIME
     Indication: INFECTION
     Dosage: 400 MILLIGRAM DAILY;
     Route: 048
     Dates: start: 20140825, end: 20140901
  11. SEROPLEX [Concomitant]
     Active Substance: ESCITALOPRAM OXALATE
     Dosage: 10 MILLIGRAM DAILY; STOPPED FOLLOWING HYPONATREMIA
     Route: 048
     Dates: start: 20140917, end: 20140925
  12. VOLUVEN [Concomitant]
     Active Substance: HYDROXYETHYL STARCH 130/0.4
     Indication: HYPOVOLAEMIA
     Dosage: ADDITION OF 500CC WITHIN 30 MINUTES
     Route: 042
     Dates: start: 20140926
  13. FLAGYL [Concomitant]
     Active Substance: METRONIDAZOLE\METRONIDAZOLE HYDROCHLORIDE
     Indication: INFECTION
     Dosage: 1500 MILLIGRAM DAILY;
     Route: 048
     Dates: start: 20140903, end: 20140916
  14. TEVAGRASTIM [Suspect]
     Active Substance: FILGRASTIM
     Indication: PROPHYLAXIS
     Dosage: 0.5 MIU/KG DAILY
     Route: 058
     Dates: start: 20140730, end: 20140804
  15. SERESTA [Concomitant]
     Active Substance: OXAZEPAM
     Indication: ANXIETY
     Dates: end: 20141001
  16. MORPHINE [Concomitant]
     Active Substance: MORPHINE
     Indication: PAIN
     Dosage: 24 MILLIGRAM DAILY;
     Route: 042
     Dates: start: 20141001
  17. FORTUM [Concomitant]
     Active Substance: CEFTAZIDIME
     Indication: INFECTION
     Dosage: 6 GRAM DAILY;
     Route: 042
     Dates: start: 20140927

REACTIONS (3)
  - General physical health deterioration [Fatal]
  - Shock haemorrhagic [Fatal]
  - Septic shock [Fatal]

NARRATIVE: CASE EVENT DATE: 20140901
